FAERS Safety Report 23307200 (Version 5)
Quarter: 2024Q2

REPORT INFORMATION
  Report Type: Spontaneous
  Country: JP (occurrence: JP)
  Receive Date: 20231218
  Receipt Date: 20240607
  Transmission Date: 20240715
  Serious: Yes (Other)
  Sender: FDA-Public Use
  Company Number: JP-ASTELLAS-2023JP013891

PATIENT
  Age: 74 Year
  Sex: Male

DRUGS (8)
  1. XTANDI [Suspect]
     Active Substance: ENZALUTAMIDE
     Indication: Hormone-refractory prostate cancer
     Route: 048
     Dates: start: 20231115, end: 20231207
  2. LINAGLIPTIN [Concomitant]
     Active Substance: LINAGLIPTIN
     Indication: Diabetes mellitus
     Route: 048
  3. METFORMIN HYDROCHLORIDE [Concomitant]
     Active Substance: METFORMIN HYDROCHLORIDE
     Indication: Diabetes mellitus
     Route: 048
  4. REPAGLINIDE [Concomitant]
     Active Substance: REPAGLINIDE
     Indication: Diabetes mellitus
     Route: 048
  5. LEUPLIN [Concomitant]
     Active Substance: LEUPROLIDE ACETATE
     Indication: Hormone-refractory prostate cancer
     Route: 058
     Dates: start: 20190807
  6. CASODEX [Concomitant]
     Active Substance: BICALUTAMIDE
     Indication: Hormone-refractory prostate cancer
     Route: 048
     Dates: start: 20190817, end: 20231114
  7. DONEPEZIL [Concomitant]
     Active Substance: DONEPEZIL\DONEPEZIL HYDROCHLORIDE
     Indication: Encephalitis autoimmune
     Route: 048
     Dates: start: 20231027, end: 20240201
  8. DONEPEZIL [Concomitant]
     Active Substance: DONEPEZIL\DONEPEZIL HYDROCHLORIDE
     Indication: Epilepsy

REACTIONS (1)
  - Loss of consciousness [Recovered/Resolved]

NARRATIVE: CASE EVENT DATE: 20231205
